FAERS Safety Report 11553166 (Version 2)
Quarter: 2015Q4

REPORT INFORMATION
  Report Type: Spontaneous
  Country: BR (occurrence: BR)
  Receive Date: 20150925
  Receipt Date: 20151104
  Transmission Date: 20160304
  Serious: Yes (Other)
  Sender: FDA-Public Use
  Company Number: BR-GLAXOSMITHKLINE-BR2015GSK136288

PATIENT
  Sex: Male
  Weight: 78 kg

DRUGS (1)
  1. AVAMYS [Suspect]
     Active Substance: FLUTICASONE FUROATE
     Indication: INADEQUATE LUBRICATION
     Dosage: UNK

REACTIONS (6)
  - Wound [Unknown]
  - Haemorrhage [Unknown]
  - Burning sensation [Unknown]
  - Product quality issue [Unknown]
  - Therapeutic response unexpected [Unknown]
  - Product use issue [Unknown]
